FAERS Safety Report 10589711 (Version 1)
Quarter: 2014Q4

REPORT INFORMATION
  Report Type: Spontaneous
  Country: US (occurrence: None)
  Receive Date: 20141117
  Receipt Date: 20141117
  Transmission Date: 20150529
  Serious: Yes (Life-Threatening, Hospitalization, Disabling)
  Sender: FDA-Public Use
  Company Number: None

PATIENT
  Age: 49 Year
  Sex: Male
  Weight: 95.26 kg

DRUGS (1)
  1. HUMIRA [Suspect]
     Active Substance: ADALIMUMAB
     Indication: ANKYLOSING SPONDYLITIS
     Dosage: ONE INJECTION EVERY TWO WEEKS INTO THE MUSCLE
     Route: 030
     Dates: start: 20070101, end: 20140610

REACTIONS (37)
  - Burning sensation [None]
  - Dizziness [None]
  - Fear [None]
  - Ankylosing spondylitis [None]
  - Central nervous system lesion [None]
  - Haemoptysis [None]
  - Neck pain [None]
  - Paraesthesia [None]
  - Headache [None]
  - Tuberculosis [None]
  - Musculoskeletal stiffness [None]
  - Pulmonary oedema [None]
  - Lung infection [None]
  - Alopecia [None]
  - Amyotrophic lateral sclerosis [None]
  - Rash [None]
  - Bacterial infection [None]
  - Back pain [None]
  - Musculoskeletal pain [None]
  - Somnolence [None]
  - Mood swings [None]
  - Personality change [None]
  - Formication [None]
  - Therapeutic response decreased [None]
  - Hypoaesthesia [None]
  - Fatigue [None]
  - Balance disorder [None]
  - Coordination abnormal [None]
  - Angina pectoris [None]
  - Monoplegia [None]
  - Bronchitis [None]
  - Arthralgia [None]
  - Vision blurred [None]
  - Bone lesion [None]
  - Cyst [None]
  - Cardiac disorder [None]
  - Arthritis [None]

NARRATIVE: CASE EVENT DATE: 20140610
